FAERS Safety Report 14571006 (Version 2)
Quarter: 2018Q2

REPORT INFORMATION
  Report Type: Report from Study
  Country: None (occurrence: CA)
  Receive Date: 20180226
  Receipt Date: 20180420
  Transmission Date: 20180711
  Serious: Yes (Other)
  Sender: FDA-Public Use
  Company Number: CA-ABBVIE-18K-028-2264522-00

PATIENT
  Age: 69 Year
  Sex: Male
  Weight: 86.26 kg

DRUGS (4)
  1. ALLOPURINOL. [Concomitant]
     Active Substance: ALLOPURINOL
     Indication: GOUT
     Route: 048
  2. RAMIPRIL. [Concomitant]
     Active Substance: RAMIPRIL
     Indication: HYPERTENSION
     Route: 048
  3. RANITIDINE. [Concomitant]
     Active Substance: RANITIDINE
     Indication: GASTROOESOPHAGEAL REFLUX DISEASE
     Route: 048
  4. HUMIRA [Suspect]
     Active Substance: ADALIMUMAB
     Indication: CROHN^S DISEASE
     Route: 058
     Dates: start: 2013

REACTIONS (6)
  - Rheumatoid arthritis [Not Recovered/Not Resolved]
  - Gout [Not Recovered/Not Resolved]
  - Colitis [Recovering/Resolving]
  - Intestinal polyp [Recovered/Resolved]
  - Nephrolithiasis [Not Recovered/Not Resolved]
  - Blood uric acid abnormal [Not Recovered/Not Resolved]

NARRATIVE: CASE EVENT DATE: 20180215
